FAERS Safety Report 18560382 (Version 1)
Quarter: 2020Q4

REPORT INFORMATION
  Report Type: Spontaneous
  Country: US (occurrence: US)
  Receive Date: 20201130
  Receipt Date: 20201130
  Transmission Date: 20210114
  Serious: No
  Sender: FDA-Public Use
  Company Number: US-BAYER-2020-260188

PATIENT
  Age: 61 Year
  Sex: Male

DRUGS (1)
  1. ALEVE [Suspect]
     Active Substance: NAPROXEN SODIUM
     Dosage: I ONLY TOOK ONE
     Route: 048

REACTIONS (2)
  - Product physical issue [None]
  - Expired product administered [Unknown]
